FAERS Safety Report 24903004 (Version 3)
Quarter: 2025Q1

REPORT INFORMATION
  Report Type: Report from Study
  Country: US (occurrence: US)
  Receive Date: 20250130
  Receipt Date: 20250225
  Transmission Date: 20250409
  Serious: Yes (Hospitalization)
  Sender: TAKEDA
  Company Number: US-TAKEDA-2024TUS129732

PATIENT
  Sex: Male

DRUGS (2)
  1. PONATINIB [Suspect]
     Active Substance: PONATINIB
     Indication: Chronic myeloid leukaemia
     Dosage: 45 MILLIGRAM, QD
  2. PONATINIB [Suspect]
     Active Substance: PONATINIB
     Dosage: 30 MILLIGRAM, QOD

REACTIONS (14)
  - Hypoacusis [Unknown]
  - Nausea [Unknown]
  - Vision blurred [Unknown]
  - Skin exfoliation [Unknown]
  - Fatigue [Unknown]
  - Dyspnoea [Unknown]
  - Asthenia [Unknown]
  - Pyrexia [Unknown]
  - Off label use [Unknown]
  - Product dose omission issue [Unknown]
  - Bone pain [Unknown]
  - Night sweats [Unknown]
  - Abdominal pain upper [Unknown]
  - Arthralgia [Unknown]
